FAERS Safety Report 25917409 (Version 2)
Quarter: 2025Q4

REPORT INFORMATION
  Report Type: Spontaneous
  Country: EU (occurrence: EU)
  Receive Date: 20251014
  Receipt Date: 20251112
  Transmission Date: 20260118
  Serious: Yes (Hospitalization, Other)
  Sender: ROCHE
  Company Number: EU-ROCHE-10000405621

PATIENT
  Age: 70 Year
  Sex: Male

DRUGS (2)
  1. CROVALIMAB [Suspect]
     Active Substance: CROVALIMAB
     Indication: Paroxysmal nocturnal haemoglobinuria
     Route: 050
  2. PREDNISOLONE [Concomitant]
     Active Substance: PREDNISOLONE

REACTIONS (4)
  - Ocular vascular disorder [Unknown]
  - Type III immune complex mediated reaction [Unknown]
  - Atrial fibrillation [Unknown]
  - Embolism arterial [Unknown]
